FAERS Safety Report 11692150 (Version 4)
Quarter: 2015Q4

REPORT INFORMATION
  Report Type: Report from Study
  Country: US (occurrence: US)
  Receive Date: 20151103
  Receipt Date: 20151223
  Transmission Date: 20160304
  Serious: Yes (Hospitalization, Disabling, Other)
  Sender: FDA-Public Use
  Company Number: US-AMGEN-USASL2015114576

PATIENT
  Age: 54 Year
  Sex: Female

DRUGS (1)
  1. ENBREL [Suspect]
     Active Substance: ETANERCEPT
     Indication: RHEUMATOID ARTHRITIS
     Dosage: 50 MG, QWK
     Route: 065
     Dates: start: 200903

REACTIONS (10)
  - Central nervous system lesion [Unknown]
  - Thrombosis [Unknown]
  - Memory impairment [Unknown]
  - Seizure [Unknown]
  - Arthralgia [Unknown]
  - Fibromyalgia [Unknown]
  - Epilepsy [Unknown]
  - Meningitis viral [Unknown]
  - Panic attack [Unknown]
  - Rheumatoid arthritis [Unknown]
